FAERS Safety Report 22398754 (Version 3)
Quarter: 2023Q2

REPORT INFORMATION
  Report Type: Spontaneous
  Country: US (occurrence: US)
  Receive Date: 20230602
  Receipt Date: 20230620
  Transmission Date: 20230721
  Serious: Yes (Other)
  Sender: FDA-Public Use
  Company Number: US-PFIZER INC-202300199849

PATIENT
  Age: 53 Year
  Sex: Female
  Weight: 46.27 kg

DRUGS (2)
  1. ESTRING [Suspect]
     Active Substance: ESTRADIOL
     Indication: Vulvovaginal dryness
     Dosage: UNK
     Route: 067
  2. PURIFIED WATER [Suspect]
     Active Substance: WATER
     Indication: Vulvovaginal dryness
     Dosage: UNK
     Route: 067
     Dates: start: 202305

REACTIONS (2)
  - Vaginal discharge [Recovered/Resolved]
  - Fungal infection [Unknown]

NARRATIVE: CASE EVENT DATE: 20220501
